FAERS Safety Report 16591468 (Version 3)
Quarter: 2019Q3

REPORT INFORMATION
  Report Type: Spontaneous
  Country: US (occurrence: US)
  Receive Date: 20190718
  Receipt Date: 20190823
  Transmission Date: 20191004
  Serious: Yes (Hospitalization)
  Sender: FDA-Public Use
  Company Number: US-PFIZER INC-2019305725

PATIENT
  Age: 53 Year
  Sex: Male
  Weight: 110.66 kg

DRUGS (1)
  1. LYRICA [Suspect]
     Active Substance: PREGABALIN
     Indication: BURSITIS
     Dosage: 50 MG, 3X/DAY
     Dates: start: 2017

REACTIONS (4)
  - Atrial fibrillation [Unknown]
  - Off label use [Unknown]
  - Syncope [Unknown]
  - Drug ineffective for unapproved indication [Unknown]

NARRATIVE: CASE EVENT DATE: 2019
